FAERS Safety Report 6123077-4 (Version None)
Quarter: 2009Q1

REPORT INFORMATION
  Report Type: 
  Country: None (occurrence: None)
  Receive Date: 20090318
  Receipt Date: 20090306
  Transmission Date: 20090719
  Serious: Yes (Other)
  Sender: FDA-Public Use
  Company Number: JP-PFIZER INC-2009175318

PATIENT

DRUGS (1)
  1. ZYVOX [Suspect]
     Indication: STAPHYLOCOCCAL SEPSIS
     Dosage: UNK
     Route: 042
     Dates: start: 20090212, end: 20090220

REACTIONS (2)
  - HEPATORENAL SYNDROME [None]
  - HYPONATRAEMIA [None]
